FAERS Safety Report 8086761-1 (Version None)
Quarter: 2012Q1

REPORT INFORMATION
  Report Type: 
  Country: None (occurrence: None)
  Receive Date: 20120128
  Receipt Date: 20110613
  Transmission Date: 20120608
  Serious: No
  Sender: FDA-Public Use
  Company Number: US-ABBOTT-11P-163-0732105-00

PATIENT
  Age: 21 Year
  Sex: Male

DRUGS (6)
  1. METHOTREXATE [Concomitant]
     Indication: SPONDYLITIS
     Dosage: SIX TABLETS WEEKLY
  2. OXYCONTIN [Concomitant]
     Indication: PAIN
  3. HUMIRA [Suspect]
     Indication: ANKYLOSING SPONDYLITIS
     Route: 058
     Dates: start: 20110301, end: 20110501
  4. HUMIRA [Suspect]
     Dates: start: 20110613
  5. HUMIRA [Suspect]
     Dates: start: 20110501
  6. CELEBREX [Concomitant]
     Indication: SPONDYLITIS

REACTIONS (2)
  - DRUG INEFFECTIVE [None]
  - MENISCUS LESION [None]
